FAERS Safety Report 7594449-6 (Version None)
Quarter: 2011Q3

REPORT INFORMATION
  Report Type: 
  Country: None (occurrence: None)
  Receive Date: 20110707
  Receipt Date: 20110629
  Transmission Date: 20111222
  Serious: No
  Sender: FDA-Public Use
  Company Number: US-TEVA-288543USA

PATIENT
  Sex: Male
  Weight: 62.652 kg

DRUGS (2)
  1. MEMANTINE HYDROCHLORIDE [Concomitant]
  2. COPAXONE [Suspect]
     Indication: MULTIPLE SCLEROSIS
     Dosage: 20 MILLIGRAM;
     Route: 058
     Dates: end: 20110624

REACTIONS (6)
  - LYMPHADENITIS [None]
  - PAIN IN EXTREMITY [None]
  - INSOMNIA [None]
  - SKIN DISCOLOURATION [None]
  - ASTHENIA [None]
  - LYMPHADENOPATHY [None]
